FAERS Safety Report 5825057-2 (Version None)
Quarter: 2008Q3

REPORT INFORMATION
  Report Type: 
  Country: None (occurrence: None)
  Receive Date: 20080729
  Receipt Date: 20080718
  Transmission Date: 20090109
  Serious: Yes (Hospitalization)
  Sender: FDA-Public Use
  Company Number: CH-BRISTOL-MYERS SQUIBB COMPANY-14279533

PATIENT
  Age: 67 Year
  Sex: Male

DRUGS (2)
  1. GLUCOPHAGE [Suspect]
     Dosage: 850MG TABLET
     Route: 048
     Dates: end: 20080625
  2. AMARYL [Suspect]
     Dosage: 2MG TABLET
     Route: 048
     Dates: end: 20080625

REACTIONS (2)
  - CONFUSIONAL STATE [None]
  - HYPOGLYCAEMIA [None]
